FAERS Safety Report 16911527 (Version 1)
Quarter: 2019Q4

REPORT INFORMATION
  Report Type: Spontaneous
  Country: US (occurrence: US)
  Receive Date: 20191013
  Receipt Date: 20191013
  Transmission Date: 20200122
  Serious: No
  Sender: FDA-Public Use
  Company Number: US-C B FLEET CO INC-201811-US-002861

PATIENT
  Sex: Female

DRUGS (1)
  1. MONISTAT 7 COMBINATION PACK 7-DAY PRE-FILLED APPLICATORS [Suspect]
     Active Substance: MICONAZOLE NITRATE
     Indication: FUNGAL INFECTION
     Dosage: USED ONCE
     Route: 067
     Dates: start: 20181125, end: 20181126

REACTIONS (3)
  - Vulvovaginal pruritus [Recovering/Resolving]
  - Vulvovaginal burning sensation [Recovering/Resolving]
  - Vaginal haemorrhage [Recovering/Resolving]
